FAERS Safety Report 19929418 (Version 5)
Quarter: 2021Q4

REPORT INFORMATION
  Report Type: Report from Study
  Country: CA (occurrence: CA)
  Receive Date: 20211007
  Receipt Date: 20211208
  Transmission Date: 20220304
  Serious: Yes (Other)
  Sender: FDA-Public Use
  Company Number: CA-JNJFOC-20211005284

PATIENT
  Age: 17 Year
  Sex: Male
  Weight: 50 kg

DRUGS (5)
  1. REMICADE [Suspect]
     Active Substance: INFLIXIMAB
     Indication: Colitis ulcerative
     Dosage: ON 18-NOV-2021, THE PATIENT RECEIVED INFUSION.
     Route: 042
     Dates: start: 20210116
  2. REMICADE [Suspect]
     Active Substance: INFLIXIMAB
     Dosage: REINDUCTION DOSE- 10MG/KG WEEKS 0,1,4 AND EVERY 4 WEEKS
     Route: 042
  3. REMICADE [Suspect]
     Active Substance: INFLIXIMAB
     Dosage: 13TH INFUSION ON 19-OCT-2021
     Route: 042
  4. REMICADE [Suspect]
     Active Substance: INFLIXIMAB
     Route: 042
  5. METHOTREXATE [Concomitant]
     Active Substance: METHOTREXATE
     Indication: Product used for unknown indication
     Route: 048

REACTIONS (2)
  - Colitis ulcerative [Not Recovered/Not Resolved]
  - Melaena [Unknown]

NARRATIVE: CASE EVENT DATE: 20210924
